FAERS Safety Report 4901639-7 (Version None)
Quarter: 2006Q1

REPORT INFORMATION
  Report Type: 
  Country: None (occurrence: None)
  Receive Date: 20060206
  Receipt Date: 20050803
  Transmission Date: 20060701
  Serious: No
  Sender: FDA-Public Use
  Company Number: US-BRISTOL-MYERS SQUIBB COMPANY-13065024

PATIENT
  Age: 42 Year
  Sex: Female

DRUGS (6)
  1. CARBOPLATIN [Suspect]
     Route: 042
     Dates: start: 20050720, end: 20050720
  2. TAXOL [Suspect]
     Route: 042
     Dates: start: 20050720, end: 20050720
  3. ANZEMET [Concomitant]
     Indication: PREMEDICATION
     Route: 042
     Dates: start: 20050720, end: 20050720
  4. DECADRON PHOSPHATE [Concomitant]
     Indication: PREMEDICATION
     Route: 042
     Dates: start: 20050720, end: 20050720
  5. BENADRYL [Concomitant]
     Indication: PREMEDICATION
     Route: 042
     Dates: start: 20050720, end: 20050720
  6. ZANTAC [Concomitant]
     Indication: PREMEDICATION
     Route: 042
     Dates: start: 20050720, end: 20050720

REACTIONS (1)
  - HYPERSENSITIVITY [None]
